FAERS Safety Report 5073713-9 (Version None)
Quarter: 2006Q3

REPORT INFORMATION
  Report Type: 
  Country: None (occurrence: None)
  Receive Date: 20060808
  Receipt Date: 20050408
  Transmission Date: 20061208
  Serious: No
  Sender: FDA-Public Use
  Company Number: US-AMGEN-KDL126445

PATIENT
  Age: 77 Year
  Sex: Female
  Weight: 84 kg

DRUGS (2)
  1. PROCRIT [Suspect]
     Indication: ANAEMIA OF MALIGNANT DISEASE
     Dates: start: 20050101
  2. OXYGEN [Concomitant]

REACTIONS (2)
  - DYSPNOEA EXERTIONAL [None]
  - FATIGUE [None]
